FAERS Safety Report 25866756 (Version 1)
Quarter: 2025Q3

REPORT INFORMATION
  Report Type: Spontaneous
  Country: EU (occurrence: EU)
  Receive Date: 20250930
  Receipt Date: 20250930
  Transmission Date: 20251020
  Serious: Yes (Other)
  Sender: SANOFI AVENTIS
  Company Number: EU-SANOFI-02665680

PATIENT
  Age: 81 Year
  Sex: Female

DRUGS (2)
  1. IRBESARTAN [Suspect]
     Active Substance: IRBESARTAN
     Indication: Hypertension
     Dates: end: 2025
  2. IRBESARTAN [Suspect]
     Active Substance: IRBESARTAN
     Dates: start: 202509

REACTIONS (9)
  - Hypertensive crisis [Not Recovered/Not Resolved]
  - Atrial fibrillation [Unknown]
  - Muscle twitching [Unknown]
  - Hypotonia [Unknown]
  - Panic reaction [Unknown]
  - Feeling abnormal [Unknown]
  - Dizziness [Unknown]
  - Inappropriate schedule of product administration [Unknown]
  - Product prescribing issue [Unknown]

NARRATIVE: CASE EVENT DATE: 20250101
